FAERS Safety Report 5919558-6 (Version None)
Quarter: 2008Q4

REPORT INFORMATION
  Report Type: 
  Country: None (occurrence: None)
  Receive Date: 20081015
  Receipt Date: 20071016
  Transmission Date: 20090506
  Serious: Yes (Other)
  Sender: FDA-Public Use
  Company Number: US-BRISTOL-MYERS SQUIBB COMPANY-13944541

PATIENT

DRUGS (1)
  1. KENALOG-40 [Suspect]
     Dosage: 6 QUANTITY OF 40MG-10ML.

REACTIONS (1)
  - EYE INFECTION [None]
